FAERS Safety Report 14652647 (Version 1)
Quarter: 2018Q1

REPORT INFORMATION
  Report Type: Report from Study
  Country: CN (occurrence: CN)
  Receive Date: 20180319
  Receipt Date: 20180319
  Transmission Date: 20180509
  Serious: Yes (Death, Other)
  Sender: FDA-Public Use
  Company Number: CN-ACCORD-064417

PATIENT

DRUGS (3)
  1. BASILIXIMAB NOVARTIS PHARMA STEIN AG [Suspect]
     Active Substance: BASILIXIMAB
     Indication: GRAFT VERSUS HOST DISEASE
     Dosage: ONLY ON DAY +?4 AFTER HSCT
  2. MYCOPHENOLIC ACID. [Suspect]
     Active Substance: MYCOPHENOLIC ACID
     Indication: GRAFT VERSUS HOST DISEASE
     Route: 048
  3. CICLOSPORIN [Suspect]
     Active Substance: CYCLOSPORINE
     Indication: GRAFT VERSUS HOST DISEASE
     Dosage: FROM DAY -5
     Route: 042

REACTIONS (3)
  - Pneumonia [Fatal]
  - Full blood count decreased [None]
  - Blood count abnormal [Fatal]
